FAERS Safety Report 20769503 (Version 1)
Quarter: 2022Q2

REPORT INFORMATION
  Report Type: Spontaneous
  Country: US (occurrence: US)
  Receive Date: 20220429
  Receipt Date: 20220429
  Transmission Date: 20220721
  Serious: No
  Sender: FDA-Public Use
  Company Number: US-NOVARTISTESTPH-NVSC2022US099343

PATIENT
  Sex: Female

DRUGS (2)
  1. BRIMONIDINE TARTRATE [Suspect]
     Active Substance: BRIMONIDINE TARTRATE
     Indication: Dry eye
     Dosage: 0.15 %, BID (5 ML) (IN THE LEFT EYE)
     Route: 047
  2. SYSTANE (HYPROMELLOSE 2910 (4000 MPA.S)) [Concomitant]
     Active Substance: HYPROMELLOSE 2910 (4000 MPA.S)
     Indication: Glaucoma
     Dosage: UNK
     Route: 065

REACTIONS (8)
  - Eyelids pruritus [Unknown]
  - Eye pain [Unknown]
  - Vision blurred [Unknown]
  - Dry eye [Unknown]
  - Erythema of eyelid [Unknown]
  - Vasodilatation [Unknown]
  - Conjunctival bleb [Unknown]
  - Product use in unapproved indication [Unknown]
